FAERS Safety Report 8901815 (Version 1)
Quarter: 2012Q4

REPORT INFORMATION
  Report Type: Spontaneous
  Country: US (occurrence: None)
  Receive Date: 20121112
  Receipt Date: 20121112
  Transmission Date: 20130627
  Serious: Yes (Death)
  Sender: FDA-Public Use
  Company Number: None

PATIENT
  Age: 68 Year
  Sex: Male
  Weight: 63.5 kg

DRUGS (1)
  1. CARDIOPLEGIC [Suspect]
     Indication: HEART TRANSPLANT
     Dates: start: 20120827

REACTIONS (1)
  - Fungal infection [None]
